FAERS Safety Report 8798098 (Version 1)
Quarter: 2012Q4

REPORT INFORMATION
  Report Type: 
  Country: US (occurrence: US)
  Receive Date: 20120920
  Receipt Date: 20120920
  Transmission Date: 20130627
  Serious: Yes (Hospitalization)
  Sender: FDA-Public Use
  Company Number: US-ASTRAZENECA-2012SE56004

PATIENT
  Age: 70 Year
  Sex: Male
  Weight: 126.6 kg

DRUGS (2)
  1. BRILINTA [Suspect]
     Indication: ACUTE CORONARY SYNDROME
     Route: 048
     Dates: start: 20110717, end: 20110730
  2. BRILINTA [Suspect]
     Indication: STENT PLACEMENT
     Route: 048
     Dates: start: 20110717, end: 20110730

REACTIONS (1)
  - Dyspnoea [Recovered/Resolved]
